FAERS Safety Report 6330183-8 (Version None)
Quarter: 2009Q3

REPORT INFORMATION
  Report Type: 
  Country: None (occurrence: None)
  Receive Date: 20090827
  Receipt Date: 20090818
  Transmission Date: 20100115
  Serious: Yes (Hospitalization, Congenital Anomaly)
  Sender: FDA-Public Use
  Company Number: DE-WYE-G04233009

PATIENT
  Sex: Male

DRUGS (5)
  1. TREVILOR RETARD [Suspect]
     Indication: DEPRESSION
     Route: 064
     Dates: start: 20081001, end: 20081012
  2. TREVILOR RETARD [Suspect]
     Route: 064
     Dates: start: 20081125, end: 20090507
  3. TREVILOR RETARD [Suspect]
     Route: 064
     Dates: start: 20090508, end: 20090620
  4. TREVILOR RETARD [Suspect]
     Dates: start: 20070101, end: 20070101
  5. TREVILOR RETARD [Suspect]
     Dosage: DOSE REDUCTION FROM 300 MG/D TO 75 MG/D
     Dates: start: 20070101, end: 20080930

REACTIONS (9)
  - ANKYLOGLOSSIA CONGENITAL [None]
  - CAESAREAN SECTION [None]
  - CONGENITAL ANOMALY [None]
  - CYANOSIS NEONATAL [None]
  - FOETAL HEART RATE DECELERATION [None]
  - MATERNAL DRUGS AFFECTING FOETUS [None]
  - NEONATAL RESPIRATORY FAILURE [None]
  - POSTMATURE BABY [None]
  - UMBILICAL CORD AROUND NECK [None]
